FAERS Safety Report 21419022 (Version 5)
Quarter: 2024Q3

REPORT INFORMATION
  Report Type: Spontaneous
  Country: CA (occurrence: CA)
  Receive Date: 20221006
  Receipt Date: 20240724
  Transmission Date: 20241017
  Serious: Yes (Other)
  Sender: PFIZER
  Company Number: CA-PFIZER INC-202201204325

PATIENT
  Age: 66 Year
  Sex: Female

DRUGS (3)
  1. ABRILADA [Suspect]
     Active Substance: ADALIMUMAB-AFZB
     Indication: Crohn^s disease
     Dosage: 1 DF, 160 MG ON WEEK 0, 80 MG ON WEEK 2, THEN 40 MG EVERY 2 WEEKS STARTING ON WEEK 4
     Route: 058
     Dates: start: 20220310
  2. ABRILADA [Suspect]
     Active Substance: ADALIMUMAB-AFZB
     Dosage: 1 DF,160 MG ON WEEK 0, 80 MG ON WEEK 2, THEN 40 MG EVERY 2 WEEKS STARTING ON WEEK 4
     Route: 058
     Dates: start: 20230810
  3. ABRILADA [Suspect]
     Active Substance: ADALIMUMAB-AFZB
     Dosage: 1 DF,160 MG ON WEEK 0, 80 MG ON WEEK 2, THEN 40 MG EVERY 2 WEEKS STARTING ON WEEK 4
     Route: 058
     Dates: start: 20240711

REACTIONS (2)
  - Stoma creation [Unknown]
  - Condition aggravated [Not Recovered/Not Resolved]
